FAERS Safety Report 16202100 (Version 1)
Quarter: 2019Q2

REPORT INFORMATION
  Report Type: Spontaneous
  Country: US (occurrence: US)
  Receive Date: 20190415
  Receipt Date: 20190415
  Transmission Date: 20190711
  Serious: Yes (Death)
  Sender: FDA-Public Use
  Company Number: None

PATIENT

DRUGS (2)
  1. METHYLPHENIDATE HCL TABLETS [Suspect]
     Active Substance: METHYLPHENIDATE HYDROCHLORIDE
  2. LORAZEPAM TABLETS [Suspect]
     Active Substance: LORAZEPAM

REACTIONS (1)
  - Death [None]
